FAERS Safety Report 8287751-6 (Version None)
Quarter: 2012Q2

REPORT INFORMATION
  Report Type: 
  Country: None (occurrence: None)
  Receive Date: 20120416
  Receipt Date: 20120404
  Transmission Date: 20120825
  Serious: Yes (Hospitalization)
  Sender: FDA-Public Use
  Company Number: FR-PFIZER INC-2012091253

PATIENT
  Age: 65 Year
  Sex: Female

DRUGS (7)
  1. CELECTOL [Interacting]
     Indication: HYPERTENSION
     Dosage: 200 MG, DAILY
     Route: 048
  2. RAMIPRIL [Suspect]
     Indication: HYPERTENSION
     Dosage: 10 MG, DAILY
     Route: 048
  3. GLUCOPHAGE [Concomitant]
     Dosage: UNK
  4. CLONAZEPAM [Concomitant]
     Dosage: UNK
  5. INSULIN [Concomitant]
     Dosage: UNK
  6. FUROSEMIDE [Interacting]
     Indication: HYPERTENSION
     Dosage: 20 MG, DAILY
     Route: 048
  7. CRESTOR [Concomitant]
     Dosage: UNK

REACTIONS (4)
  - FALL [None]
  - ARRHYTHMIA [None]
  - HYPOTENSION [None]
  - DRUG INTERACTION [None]
